FAERS Safety Report 6956273-4 (Version None)
Quarter: 2010Q3

REPORT INFORMATION
  Report Type: 
  Country: None (occurrence: None)
  Receive Date: 20100826
  Receipt Date: 20100812
  Transmission Date: 20110219
  Serious: Yes (Other)
  Sender: FDA-Public Use
  Company Number: DKLU1064428

PATIENT

DRUGS (2)
  1. COSMEGEN [Suspect]
     Indication: MALIGNANT MELANOMA
     Dosage: 1 MG MILLIGRAM(S), INTRAVENOUS BOLUS ; 0.5 MG MILLIGRAM(S), INTRAVENOUS BOLUS
     Route: 040
  2. MELPHALAN (MELPHALAN) (MELPHALAN) [Suspect]
     Indication: MALIGNANT MELANOMA
     Dosage: 1.3 MG/KG MILLIGRAM(S)/KILOGRAM, INTRA-ARTERIAL ; 0.7 MG/KG MILLIGRAM(S)/KILOGRAM, INTRA-ARTERIAL
     Route: 013

REACTIONS (2)
  - FASCIOTOMY [None]
  - THERAPEUTIC AGENT TOXICITY [None]
